FAERS Safety Report 20305614 (Version 2)
Quarter: 2022Q1

REPORT INFORMATION
  Report Type: Spontaneous
  Country: US (occurrence: US)
  Receive Date: 20220106
  Receipt Date: 20220111
  Transmission Date: 20220423
  Serious: Yes (Other)
  Sender: FDA-Public Use
  Company Number: US-SANOFI-00913773

PATIENT
  Age: 70 Year
  Sex: Male

DRUGS (6)
  1. LANTUS [Suspect]
     Active Substance: INSULIN GLARGINE
     Indication: Type 2 diabetes mellitus
     Dosage: 36 U, QD
     Dates: start: 202112
  2. LANTUS [Suspect]
     Active Substance: INSULIN GLARGINE
  3. PREDNISONE [Suspect]
     Active Substance: PREDNISONE
  4. ATORVASTATIN CALCIUM [Suspect]
     Active Substance: ATORVASTATIN CALCIUM
  5. TRESIBA [Concomitant]
     Active Substance: INSULIN DEGLUDEC
     Dosage: UNK
     Dates: end: 202112
  6. SODIUM [Concomitant]
     Active Substance: SODIUM

REACTIONS (13)
  - Neuropathy peripheral [Unknown]
  - Arrhythmia [Unknown]
  - Pneumonia bacterial [Unknown]
  - Limb discomfort [Unknown]
  - Phantom limb syndrome [Unknown]
  - Dyspnoea [Unknown]
  - COVID-19 [Unknown]
  - Leg amputation [Unknown]
  - Cataract operation [Unknown]
  - Blood glucose fluctuation [Unknown]
  - Candida infection [Unknown]
  - Injection site discomfort [Unknown]
  - Blood glucose decreased [Unknown]

NARRATIVE: CASE EVENT DATE: 20190301
